FAERS Safety Report 13585364 (Version 1)
Quarter: 2017Q2

REPORT INFORMATION
  Report Type: Spontaneous
  Country: PE (occurrence: PE)
  Receive Date: 20170526
  Receipt Date: 20170526
  Transmission Date: 20170830
  Serious: Yes (Other)
  Sender: FDA-Public Use
  Company Number: PE-GLAXOSMITHKLINE-PE2017GSK079635

PATIENT
  Age: 83 Year
  Sex: Male

DRUGS (1)
  1. SERETIDE [Suspect]
     Active Substance: FLUTICASONE PROPIONATE\SALMETEROL XINAFOATE
     Indication: ASTHMA
     Dosage: UNK UNK, BID
     Route: 055
     Dates: start: 201512, end: 201705

REACTIONS (1)
  - Gastric infection [Not Recovered/Not Resolved]

NARRATIVE: CASE EVENT DATE: 201705
